FAERS Safety Report 10004734 (Version 1)
Quarter: 2014Q1

REPORT INFORMATION
  Report Type: Spontaneous
  Country: CA (occurrence: CA)
  Receive Date: 20140312
  Receipt Date: 20140312
  Transmission Date: 20141002
  Serious: Yes (Disabling)
  Sender: FDA-Public Use
  Company Number: CA-GLAXOSMITHKLINE-A1064391A

PATIENT
  Age: 73 Year
  Sex: Female

DRUGS (9)
  1. ADVAIR [Suspect]
     Indication: PRODUCT USED FOR UNKNOWN INDICATION
     Dosage: 2PUFF PER DAY
     Route: 055
  2. SPIRIVA [Suspect]
     Indication: PRODUCT USED FOR UNKNOWN INDICATION
     Dosage: 18MCG UNKNOWN
     Route: 055
  3. ACTONEL [Concomitant]
     Route: 048
  4. FOLIC ACID [Concomitant]
     Route: 048
  5. METHOTREXATE [Concomitant]
     Route: 048
  6. MICARDIS [Concomitant]
     Route: 048
  7. METHACIN [Concomitant]
     Route: 048
  8. QUININE [Concomitant]
     Route: 048
  9. OMEPRAZOLE [Concomitant]
     Route: 048

REACTIONS (2)
  - Ageusia [Not Recovered/Not Resolved]
  - Anosmia [Not Recovered/Not Resolved]
